FAERS Safety Report 8438646-6 (Version None)
Quarter: 2012Q2

REPORT INFORMATION
  Report Type: 
  Country: None (occurrence: None)
  Receive Date: 20120615
  Receipt Date: 20120605
  Transmission Date: 20120825
  Serious: Yes (Death, Hospitalization)
  Sender: FDA-Public Use
  Company Number: FR-BRISTOL-MYERS SQUIBB COMPANY-16666414

PATIENT
  Age: 56 Year
  Sex: Female

DRUGS (3)
  1. ADRIAMYCIN PFS [Suspect]
  2. TAXOL [Suspect]
     Indication: BREAST CANCER
     Route: 042
     Dates: start: 20120124, end: 20120216
  3. AVASTIN [Suspect]
     Indication: BREAST CANCER
     Dosage: AVASTIN 25 MG/ML, SOLUTION TO DILUTE FOR INFUSION (BEVACIZUMAB) 50 MG/M2
     Route: 042
     Dates: start: 20120124, end: 20120216

REACTIONS (5)
  - ESCHERICHIA SEPSIS [None]
  - DISSEMINATED INTRAVASCULAR COAGULATION [None]
  - HAEMORRHAGE [None]
  - THROMBOCYTOPENIA [None]
  - HEPATIC FAILURE [None]
